FAERS Safety Report 13907020 (Version 1)
Quarter: 2017Q3

REPORT INFORMATION
  Report Type: Spontaneous
  Country: EG (occurrence: EG)
  Receive Date: 20170825
  Receipt Date: 20170825
  Transmission Date: 20171127
  Serious: Yes (Other)
  Sender: FDA-Public Use
  Company Number: EG-MYLANLABS-2017M1052007

PATIENT

DRUGS (6)
  1. CISPLATIN MYLAN [Suspect]
     Active Substance: CISPLATIN
     Dosage: UNK, CYCLE
     Dates: start: 20170607
  2. UTORAL [Suspect]
     Active Substance: FLUOROURACIL
     Indication: GASTRIC CANCER
     Dosage: UNK UNK, CYCLE
     Dates: start: 20170516
  3. UTORAL [Suspect]
     Active Substance: FLUOROURACIL
     Dosage: UNK, CYCLE
     Dates: start: 20170607
  4. FARMORUBICIN RD [Suspect]
     Active Substance: EPIRUBICIN HYDROCHLORIDE
     Indication: GASTRIC CANCER
     Dosage: UNK UNK, CYCLE
     Dates: start: 20170516
  5. FARMORUBICIN RD [Suspect]
     Active Substance: EPIRUBICIN HYDROCHLORIDE
     Dosage: UNK, CYCLE
     Dates: start: 20170607
  6. CISPLATIN MYLAN [Suspect]
     Active Substance: CISPLATIN
     Indication: GASTRIC CANCER
     Dosage: UNK UNK, CYCLE
     Dates: start: 20170516

REACTIONS (2)
  - Blood creatinine increased [Unknown]
  - Anuria [Unknown]
